FAERS Safety Report 7073415-3 (Version None)
Quarter: 2010Q4

REPORT INFORMATION
  Report Type: 
  Country: None (occurrence: None)
  Receive Date: 20101029
  Receipt Date: 20100614
  Transmission Date: 20110411
  Serious: No
  Sender: FDA-Public Use
  Company Number: A0865025A

PATIENT
  Age: 50 Year
  Sex: Female

DRUGS (3)
  1. ADVAIR DISKUS 100/50 [Suspect]
     Indication: ASTHMA
     Dosage: 1PUFF TWICE PER DAY
     Route: 055
  2. PREDNISONE [Concomitant]
     Route: 042
  3. ALBUTEROL [Concomitant]

REACTIONS (3)
  - DRUG INEFFECTIVE [None]
  - DYSPHONIA [None]
  - NASOPHARYNGITIS [None]
